FAERS Safety Report 17874436 (Version 1)
Quarter: 2020Q2

REPORT INFORMATION
  Report Type: Spontaneous
  Country: CA (occurrence: CA)
  Receive Date: 20200609
  Receipt Date: 20200609
  Transmission Date: 20200714
  Serious: Yes (Other)
  Sender: FDA-Public Use
  Company Number: CA-TEVA-2020-CA-1245286

PATIENT
  Age: 50 Year
  Sex: Female

DRUGS (7)
  1. CHLOROQUINE. [Concomitant]
     Active Substance: CHLOROQUINE
  2. ESOMEPRAZOLE SODIUM. [Concomitant]
     Active Substance: ESOMEPRAZOLE SODIUM
     Route: 065
  3. PREDNISONE. [Concomitant]
     Active Substance: PREDNISONE
  4. METHOTREXATE. [Suspect]
     Active Substance: METHOTREXATE
     Indication: RHEUMATOID ARTHRITIS
     Route: 065
  5. DESOXIMETASONE. [Concomitant]
     Active Substance: DESOXIMETASONE
  6. HYDROXYCHLOROQUINE [Concomitant]
     Active Substance: HYDROXYCHLOROQUINE
     Route: 048
  7. CELEBREX [Concomitant]
     Active Substance: CELECOXIB
     Route: 065

REACTIONS (5)
  - Pyrexia [Unknown]
  - Renal impairment [Unknown]
  - Drug-induced liver injury [Unknown]
  - Hepatic function abnormal [Unknown]
  - Treatment failure [Unknown]
